FAERS Safety Report 13410713 (Version 1)
Quarter: 2017Q2

REPORT INFORMATION
  Report Type: Spontaneous
  Country: PL (occurrence: PL)
  Receive Date: 20170406
  Receipt Date: 20170406
  Transmission Date: 20170830
  Serious: Yes (Other)
  Sender: FDA-Public Use
  Company Number: PL-MUNDIPHARMA DS AND PHARMACOVIGILANCE-USA-2017-0137582

PATIENT
  Age: 67 Year
  Sex: Male

DRUGS (9)
  1. MORPHINE SULFATE (SIMILAR TO NDA 19-516) [Concomitant]
     Active Substance: MORPHINE SULFATE
     Dosage: UNK UNK, Q4H
     Route: 048
  2. OXYCODONE HCL CR TABLETS (SIMILAR TO NDA 22-272) [Suspect]
     Active Substance: OXYCODONE HYDROCHLORIDE
     Indication: PAIN
     Dosage: (2 X 10 MG) 20 MG, UNK
     Route: 048
     Dates: start: 20120807
  3. MORPHINE SULFATE (SIMILAR TO NDA 19-516) [Concomitant]
     Active Substance: MORPHINE SULFATE
     Indication: PAIN
     Dosage: 10 MG, Q4H
     Route: 058
     Dates: start: 20120817
  4. MORPHINE SULFATE (SIMILAR TO NDA 19-516) [Concomitant]
     Active Substance: MORPHINE SULFATE
     Dosage: 0.5 ML, PRN
     Route: 048
     Dates: start: 20120615
  5. TRAMADOL                           /00599202/ [Concomitant]
     Active Substance: TRAMADOL
     Dosage: 50-70 MG, UNK
     Route: 048
  6. TRAMADOL                           /00599202/ [Concomitant]
     Active Substance: TRAMADOL
     Indication: PAIN
     Dosage: UP TO 400 MG, DAILY
     Route: 048
  7. MORPHINE SULFATE (SIMILAR TO NDA 19-516) [Concomitant]
     Active Substance: MORPHINE SULFATE
     Dosage: 5 MG, Q4H
     Route: 048
     Dates: start: 20120621
  8. TRAMADOL                           /00599202/ [Concomitant]
     Active Substance: TRAMADOL
     Dosage: 50 MG, Q6- 8H
     Route: 048
     Dates: start: 20120606
  9. VALPROATE [Concomitant]
     Active Substance: VALPROIC ACID
     Indication: EPILEPSY
     Dosage: (2 X 500 MG) 1000 MG, UNK
     Route: 065

REACTIONS (4)
  - Social avoidant behaviour [Unknown]
  - Pyrexia [Unknown]
  - Somnolence [Unknown]
  - Apathy [Unknown]
